FAERS Safety Report 7581689-5 (Version None)
Quarter: 2011Q2

REPORT INFORMATION
  Report Type: 
  Country: None (occurrence: None)
  Receive Date: 20110629
  Receipt Date: 20110628
  Transmission Date: 20111010
  Serious: Yes (Other)
  Sender: FDA-Public Use
  Company Number: US-PFIZER INC-2011144609

PATIENT
  Sex: Male
  Weight: 90.703 kg

DRUGS (1)
  1. ALPRAZOLAM [Suspect]
     Dosage: UNK

REACTIONS (4)
  - INTENTIONAL DRUG MISUSE [None]
  - DRUG SCREEN POSITIVE [None]
  - DRUG LEVEL ABOVE THERAPEUTIC [None]
  - ACCIDENT [None]
